FAERS Safety Report 7764012-2 (Version None)
Quarter: 2011Q3

REPORT INFORMATION
  Report Type: 
  Country: None (occurrence: None)
  Receive Date: 20110921
  Receipt Date: 20110918
  Transmission Date: 20111222
  Serious: No
  Sender: FDA-Public Use
  Company Number: US-PFIZER INC-2011220591

PATIENT
  Sex: Female

DRUGS (1)
  1. ALAVERT [Suspect]
     Dosage: UNK
     Dates: start: 20110918

REACTIONS (3)
  - URTICARIA [None]
  - ERYTHEMA [None]
  - PRURITUS [None]
